FAERS Safety Report 5437572-4 (Version None)
Quarter: 2007Q3

REPORT INFORMATION
  Report Type: 
  Country: None (occurrence: None)
  Receive Date: 20070831
  Receipt Date: 20070822
  Transmission Date: 20080115
  Serious: No
  Sender: FDA-Public Use
  Company Number: A0673655A

PATIENT

DRUGS (7)
  1. ALLI [Suspect]
  2. SYNTHROID [Concomitant]
  3. VYTORIN [Concomitant]
  4. MOBIC [Concomitant]
  5. EFFEXOR [Concomitant]
  6. WELLBUTRIN [Concomitant]
  7. DITROPAN [Concomitant]

REACTIONS (3)
  - ARTHRALGIA [None]
  - FATIGUE [None]
  - MYALGIA [None]
